FAERS Safety Report 16996051 (Version 1)
Quarter: 2019Q4

REPORT INFORMATION
  Report Type: Spontaneous
  Country: US (occurrence: US)
  Receive Date: 20191105
  Receipt Date: 20191105
  Transmission Date: 20200122
  Serious: Yes (Hospitalization, Other)
  Sender: FDA-Public Use
  Company Number: US-MAYNE PHARMA-2019MYN000395

PATIENT

DRUGS (1)
  1. CLOZAPINE. [Suspect]
     Active Substance: CLOZAPINE
     Indication: SCHIZOPHRENIA
     Dosage: 300 MG, QHS
     Route: 065

REACTIONS (7)
  - Pyrexia [Unknown]
  - Pneumonia [Unknown]
  - Cellulitis [Unknown]
  - Tachycardia [Unknown]
  - Sepsis [Unknown]
  - Constipation [Unknown]
  - Atrial fibrillation [Unknown]

NARRATIVE: CASE EVENT DATE: 2019
